FAERS Safety Report 7711849-1 (Version None)
Quarter: 2011Q3

REPORT INFORMATION
  Report Type: 
  Country: None (occurrence: None)
  Receive Date: 20110823
  Receipt Date: 20110810
  Transmission Date: 20111222
  Serious: Yes (Hospitalization, Disabling, Other)
  Sender: FDA-Public Use
  Company Number: 2011SP014788

PATIENT
  Age: 34 Year
  Sex: Female
  Weight: 77.1115 kg

DRUGS (5)
  1. NARDIL [Suspect]
     Indication: DEPRESSION
  2. NUVARING [Suspect]
     Indication: CONTRACEPTION
     Dosage: QM
     Dates: start: 20060101
  3. NUVARING [Suspect]
     Indication: AFFECTIVE DISORDER
     Dosage: QM
     Dates: start: 20060101
  4. NUVARING [Suspect]
     Indication: CONTRACEPTION
     Dosage: QM
     Dates: start: 20080101, end: 20090401
  5. NUVARING [Suspect]
     Indication: AFFECTIVE DISORDER
     Dosage: QM
     Dates: start: 20080101, end: 20090401

REACTIONS (11)
  - PLEOCYTOSIS [None]
  - MASTOIDITIS [None]
  - INTRACRANIAL VENOUS SINUS THROMBOSIS [None]
  - ROAD TRAFFIC ACCIDENT [None]
  - TRANSVERSE SINUS THROMBOSIS [None]
  - URINARY TRACT INFECTION [None]
  - INCORRECT DOSE ADMINISTERED [None]
  - HYPOTENSION [None]
  - TRANSIENT GLOBAL AMNESIA [None]
  - MENINGITIS VIRAL [None]
  - VENOUS RECANALISATION [None]
